FAERS Safety Report 17120422 (Version 1)
Quarter: 2019Q4

REPORT INFORMATION
  Report Type: Spontaneous
  Country: US (occurrence: US)
  Receive Date: 20191113
  Receipt Date: 20191113
  Transmission Date: 20200122
  Serious: Yes (Other)
  Sender: FDA-Public Use
  Company Number: None

PATIENT
  Age: 78 Year
  Sex: Male
  Weight: 63.5 kg

DRUGS (7)
  1. MG, K W/ BROMELAIN [Concomitant]
  2. PROLIA [Concomitant]
     Active Substance: DENOSUMAB
  3. SYMBICORT [Concomitant]
     Active Substance: BUDESONIDE\FORMOTEROL FUMARATE DIHYDRATE
  4. CA SUPPLEMENT [Concomitant]
  5. NADOLOL 40 MG [Suspect]
     Active Substance: NADOLOL
     Indication: ESSENTIAL TREMOR
     Dosage: ?          QUANTITY:1 PILL;?
     Route: 048
     Dates: start: 20190510, end: 20190715
  6. VIT B-12 SUPPLEMENT [Concomitant]
  7. VIT D [Concomitant]
     Active Substance: VITAMIN D NOS

REACTIONS (3)
  - Drug ineffective [None]
  - Madarosis [None]
  - Alopecia [None]
